FAERS Safety Report 22287126 (Version 1)
Quarter: 2023Q2

REPORT INFORMATION
  Report Type: Spontaneous
  Country: CA (occurrence: CA)
  Receive Date: 20230505
  Receipt Date: 20230505
  Transmission Date: 20230721
  Serious: Yes (Hospitalization, Other)
  Sender: FDA-Public Use
  Company Number: CA-BAXTER-2023BAX020440

PATIENT
  Age: 3 Month
  Sex: Male
  Weight: 6 kg

DRUGS (9)
  1. BUPIVACAINE [Suspect]
     Active Substance: BUPIVACAINE
     Indication: Anaesthesia procedure
     Dosage: (DOSAGE FORM: SOLUTION BLOCK/INFILTRATION) AT AN UNSPECIFIED DOSE ONCE
     Route: 008
  2. FENTANYL [Suspect]
     Active Substance: FENTANYL
     Indication: Anaesthesia procedure
     Dosage: (DOSAGE FORM: NOT SPECIFIED) 5 MICROGRAM AT AN UNSPECIFIED FREQUENCY
     Route: 042
  3. CEFAZOLIN [Concomitant]
     Active Substance: CEFAZOLIN
     Dosage: UNK
     Route: 065
  4. DEXAMETHASONE [Concomitant]
     Active Substance: DEXAMETHASONE
     Dosage: (DOSAGE FORM: LIQUID INTRA-ARTICULAR)
     Route: 065
  5. DEXMEDETOMIDINE [Concomitant]
     Active Substance: DEXMEDETOMIDINE
     Dosage: (DOSAGE FORM: NOT SPECIFIED)
     Route: 065
  6. EPHEDRINE HYDROCHLORIDE [Concomitant]
     Active Substance: EPHEDRINE HYDROCHLORIDE
     Dosage: (DOSAGE FORM: NOT SPECIFIED)
     Route: 065
  7. ONDANSETRON [Concomitant]
     Active Substance: ONDANSETRON
     Dosage: (DOSAGE FORM: NOT SPECIFIED)
     Route: 065
  8. PROPOFOL [Concomitant]
     Active Substance: PROPOFOL
     Dosage: (INJECTION)
     Route: 065
  9. ROCURONIUM [Concomitant]
     Active Substance: ROCURONIUM BROMIDE
     Dosage: (DOSAGE FORM: NOT SPECIFIED)
     Route: 065

REACTIONS (2)
  - Apnoea [Recovered/Resolved]
  - Bradycardia [Recovered/Resolved]
